FAERS Safety Report 9718831 (Version 2)
Quarter: 2013Q4

REPORT INFORMATION
  Report Type: Spontaneous
  Country: US (occurrence: US)
  Receive Date: 20131127
  Receipt Date: 20131127
  Transmission Date: 20140711
  Serious: No
  Sender: FDA-Public Use
  Company Number: US-ASTRAZENECA-2006UW20710

PATIENT
  Age: 64 Year
  Sex: Female
  Weight: 62.1 kg

DRUGS (5)
  1. CRESTOR [Suspect]
     Indication: BLOOD CHOLESTEROL INCREASED
     Route: 048
     Dates: start: 200610
  2. NEXIUM [Suspect]
     Route: 048
     Dates: start: 201301
  3. SYNTHROID [Concomitant]
  4. MOTRIN [Concomitant]
  5. LORAZEPAM [Concomitant]

REACTIONS (13)
  - Pain in extremity [Unknown]
  - Neck pain [Unknown]
  - Condition aggravated [Unknown]
  - Abdominal distension [Unknown]
  - Diarrhoea [Unknown]
  - Chest pain [Unknown]
  - Dry mouth [Unknown]
  - Discomfort [Unknown]
  - Flatulence [Unknown]
  - Palpitations [Unknown]
  - Myalgia [Unknown]
  - Constipation [Unknown]
  - Abdominal pain lower [Unknown]
